FAERS Safety Report 10926334 (Version 2)
Quarter: 2015Q2

REPORT INFORMATION
  Report Type: Spontaneous
  Country: BR (occurrence: BR)
  Receive Date: 20150318
  Receipt Date: 20150403
  Transmission Date: 20150821
  Serious: Yes (Disabling, Other)
  Sender: FDA-Public Use
  Company Number: BR-ELI_LILLY_AND_COMPANY-BR201503003548

PATIENT
  Age: 70 Year
  Sex: Male

DRUGS (2)
  1. CYMBALTA [Interacting]
     Active Substance: DULOXETINE HYDROCHLORIDE
     Indication: PAIN
  2. CYMBALTA [Suspect]
     Active Substance: DULOXETINE HYDROCHLORIDE
     Indication: DEPRESSION
     Dosage: 30 MG, QD
     Route: 065

REACTIONS (3)
  - Drug interaction [Unknown]
  - Headache [Unknown]
  - Diplegia [Recovered/Resolved]

NARRATIVE: CASE EVENT DATE: 201501
